FAERS Safety Report 5446451-8 (Version None)
Quarter: 2007Q3

REPORT INFORMATION
  Report Type: 
  Country: None (occurrence: None)
  Receive Date: 20070907
  Receipt Date: 20070829
  Transmission Date: 20080115
  Serious: Yes (Life-Threatening, Hospitalization, Other)
  Sender: FDA-Public Use
  Company Number: FR-JNJFOC-20070507225

PATIENT
  Sex: Female

DRUGS (6)
  1. REMICADE [Suspect]
     Dosage: 3 INFUSIONS
     Route: 042
  2. REMICADE [Suspect]
     Dosage: 3 INFUSIONS
     Route: 042
  3. REMICADE [Suspect]
     Dosage: INITIATED ^TWO YEARS AGO^
     Route: 042
  4. REMICADE [Suspect]
     Indication: ANKYLOSING SPONDYLITIS
     Dosage: INITIATED ^TWO YEARS AGO^
     Route: 042
  5. ENBREL [Suspect]
     Route: 058
  6. ENBREL [Suspect]
     Indication: ANKYLOSING SPONDYLITIS
     Route: 058

REACTIONS (8)
  - ANTIBODY TEST POSITIVE [None]
  - ANTINUCLEAR ANTIBODY POSITIVE [None]
  - ARTHRALGIA [None]
  - LUPUS-LIKE SYNDROME [None]
  - PERICARDIAL EFFUSION [None]
  - PERICARDITIS [None]
  - RHEUMATOID FACTOR POSITIVE [None]
  - THERAPEUTIC RESPONSE DECREASED [None]
